FAERS Safety Report 13529577 (Version 1)
Quarter: 2017Q2

REPORT INFORMATION
  Report Type: Spontaneous
  Country: US (occurrence: US)
  Receive Date: 20170509
  Receipt Date: 20170509
  Transmission Date: 20170830
  Serious: No
  Sender: FDA-Public Use
  Company Number: US-ROCHE-GNE309200

PATIENT

DRUGS (1)
  1. XOLAIR [Suspect]
     Active Substance: OMALIZUMAB
     Indication: PRODUCT USED FOR UNKNOWN INDICATION
     Dosage: 150 MG, Q4W
     Route: 065

REACTIONS (3)
  - Hot flush [None]
  - Hypoaesthesia oral [None]
  - Palpitations [Recovered/Resolved]

NARRATIVE: CASE EVENT DATE: 20101102
